FAERS Safety Report 12633000 (Version 2)
Quarter: 2016Q3

REPORT INFORMATION
  Report Type: Spontaneous
  Country: US (occurrence: US)
  Receive Date: 20160808
  Receipt Date: 20160808
  Transmission Date: 20161109
  Serious: No
  Sender: FDA-Public Use
  Company Number: US-BEH-2016058026

PATIENT
  Sex: Female
  Weight: 73 kg

DRUGS (14)
  1. HIZENTRA [Suspect]
     Active Substance: HUMAN IMMUNOGLOBULIN G
     Route: 058
  2. DIPHENHYDRAMINE. [Concomitant]
     Active Substance: DIPHENHYDRAMINE
  3. MULTIVITAMINS [Concomitant]
     Active Substance: VITAMINS
  4. BIOTIN [Concomitant]
     Active Substance: BIOTIN
  5. EPIPEN [Concomitant]
     Active Substance: EPINEPHRINE
  6. AMBIEN [Concomitant]
     Active Substance: ZOLPIDEM TARTRATE
  7. FLUOCINOLNIDE [Concomitant]
  8. METOPROLOL. [Concomitant]
     Active Substance: METOPROLOL
  9. VITAMIN D [Concomitant]
     Active Substance: CHOLECALCIFEROL
  10. DOXYCYCLINE. [Concomitant]
     Active Substance: DOXYCYCLINE
  11. HIZENTRA [Suspect]
     Active Substance: HUMAN IMMUNOGLOBULIN G
     Indication: IMMUNODEFICIENCY COMMON VARIABLE
     Route: 058
  12. HIZENTRA [Suspect]
     Active Substance: HUMAN IMMUNOGLOBULIN G
  13. SPIRONOLACTONE. [Concomitant]
     Active Substance: SPIRONOLACTONE
  14. ACETAMINOPHEN. [Concomitant]
     Active Substance: ACETAMINOPHEN

REACTIONS (1)
  - Endoscopy [Unknown]
